FAERS Safety Report 9934300 (Version 1)
Quarter: 2014Q1

REPORT INFORMATION
  Report Type: Report from Study
  Country: US (occurrence: US)
  Receive Date: 20140228
  Receipt Date: 20140228
  Transmission Date: 20141002
  Serious: Yes (Hospitalization)
  Sender: FDA-Public Use
  Company Number: US-UCBSA-113280

PATIENT
  Age: 79 Year
  Sex: Female
  Weight: 91.6 kg

DRUGS (11)
  1. PLACEBO [Suspect]
     Indication: RHEUMATOID ARTHRITIS
     Dosage: 26 DOSES
     Route: 058
     Dates: start: 20130313
  2. CENTRUM MULTIVITAMIN [Concomitant]
     Indication: ROUTINE HEALTH MAINTENANCE
     Dosage: 1 TAB QD
     Route: 048
     Dates: start: 1995
  3. FISH OIL [Concomitant]
     Indication: ROUTINE HEALTH MAINTENANCE
     Route: 048
     Dates: start: 2012
  4. OXYBUTYNIN ER [Concomitant]
     Indication: HYPERTONIC BLADDER
     Route: 048
     Dates: start: 2000
  5. PREDNISONE [Concomitant]
     Indication: RHEUMATOID ARTHRITIS
     Route: 048
     Dates: start: 20130213
  6. OMEPRAZOLE [Concomitant]
     Indication: GASTROOESOPHAGEAL REFLUX DISEASE
     Route: 048
     Dates: start: 20130626
  7. LASIX [Concomitant]
     Indication: OEDEMA PERIPHERAL
     Route: 048
     Dates: start: 20130806
  8. TYLENOL [Concomitant]
     Indication: RHEUMATOID ARTHRITIS
     Route: 048
  9. FOLIC ACID [Concomitant]
     Indication: RHEUMATOID ARTHRITIS
     Route: 048
     Dates: start: 20131119
  10. METHOTREXATE [Concomitant]
     Indication: RHEUMATOID ARTHRITIS
     Route: 048
     Dates: start: 20130814
  11. LOVENOX [Concomitant]
     Indication: PULMONARY EMBOLISM
     Dosage: 100 MG/ML Q12 HOURS
     Route: 058
     Dates: start: 20140214

REACTIONS (1)
  - Muscle haemorrhage [Unknown]
